FAERS Safety Report 18911500 (Version 3)
Quarter: 2021Q2

REPORT INFORMATION
  Report Type: Spontaneous
  Country: US (occurrence: US)
  Receive Date: 20210218
  Receipt Date: 20210402
  Transmission Date: 20210717
  Serious: Yes (Other)
  Sender: FDA-Public Use
  Company Number: US-BIOHAVEN PHARMACEUTICALS-2021BHV00173

PATIENT
  Age: 64 Year
  Sex: Female
  Weight: 77.73 kg

DRUGS (16)
  1. PSEUDOEPHEDRINE HCL ER [Concomitant]
     Dosage: 240 MG, UP TO 1X/DAY AS NEEDED
     Route: 048
     Dates: start: 20201125
  2. FIORINAL/CODEINE #3 [Concomitant]
     Dosage: 1?2 CAPSULES AS NEEDED EVERY 6 HOURS
     Route: 048
     Dates: start: 20190221
  3. GUANFACINE HCL [Concomitant]
     Active Substance: GUANFACINE HYDROCHLORIDE
     Dosage: 1 TABLETS, 1X/DAY AT BEDTIME
     Route: 048
     Dates: start: 20201027
  4. LISINOPRIL. [Concomitant]
     Active Substance: LISINOPRIL
     Dosage: 20 MG, 1X/DAY
     Route: 048
     Dates: start: 20201027
  5. AMBIEN [Concomitant]
     Active Substance: ZOLPIDEM TARTRATE
     Dosage: 5 MG, 1X/DAY AT BEDTIME
     Route: 048
     Dates: start: 20191121
  6. ORPHENADRINE CITRATE EXTENDED RELEASE [Concomitant]
     Dosage: 100 MG, 2X/DAY, 1 TABLET TWICE A DAY
     Route: 048
     Dates: start: 20191030
  7. LEVOTHYROXINE SODIUM. [Concomitant]
     Active Substance: LEVOTHYROXINE SODIUM
     Dosage: 125 MCG, 1X/DAY IN THE MORNING ON AN EMPTY STOMACH
     Route: 048
     Dates: start: 20201027
  8. NURTEC ODT [Suspect]
     Active Substance: RIMEGEPANT SULFATE
     Indication: MIGRAINE
     Dosage: 75 MG, AS NEEDED (AT ONSET ALLOW TO DISSOLVE)
     Route: 048
     Dates: start: 20210122, end: 20210123
  9. ACETAMINOPHEN/CODEINE #4 [Concomitant]
     Dosage: 1/2 ? 1 TABLET AS NEEDED EVERY 6 HOURS
     Route: 048
     Dates: start: 20200508
  10. FLUTICASONE PROPIONATE. [Concomitant]
     Active Substance: FLUTICASONE PROPIONATE
     Dosage: 2 SPRAYS, 2X/DAY IN EACH NOSTRIL
     Route: 045
     Dates: start: 20190719
  11. PREGABALIN. [Concomitant]
     Active Substance: PREGABALIN
     Dosage: 150 MG, 1X/DAY
     Route: 048
     Dates: start: 20200605
  12. AMLODIPINE BESYLATE. [Concomitant]
     Active Substance: AMLODIPINE BESYLATE
     Dosage: 5 MG, 1X/DAY, AT BEDTIME
     Route: 048
     Dates: start: 20210122
  13. FUROSEMIDE. [Concomitant]
     Active Substance: FUROSEMIDE
     Dosage: 20 MG, 2X/DAY
     Route: 048
     Dates: start: 20201027
  14. ZYRTEC [Concomitant]
     Active Substance: CETIRIZINE HYDROCHLORIDE
     Dosage: 20 MG, 1X/DAY
     Route: 048
     Dates: start: 20201027
  15. EPIPEN [Concomitant]
     Active Substance: EPINEPHRINE
     Dosage: AS DIRECTED INJECTION AT ONSET OF REACTION
     Dates: start: 20160816
  16. ZOFRAN [Concomitant]
     Active Substance: ONDANSETRON HYDROCHLORIDE
     Dosage: 4 MG, UP TO 3X/DAY (EVERY 8 HOURS AS NEEDED)
     Route: 048
     Dates: start: 20201027

REACTIONS (2)
  - Chest pain [Recovered/Resolved]
  - Dyspnoea [Recovered/Resolved]

NARRATIVE: CASE EVENT DATE: 20210122
